FAERS Safety Report 20210613 (Version 3)
Quarter: 2022Q2

REPORT INFORMATION
  Report Type: Report from Study
  Country: IT (occurrence: IT)
  Receive Date: 20211221
  Receipt Date: 20220404
  Transmission Date: 20220721
  Serious: Yes (Other)
  Sender: FDA-Public Use
  Company Number: None

PATIENT
  Age: 3 Month
  Sex: Male

DRUGS (2)
  1. MENINGOCOCCAL GROUP B VACCINE [Suspect]
     Active Substance: MENINGOCOCCAL GROUP B VACCINE
     Indication: Prophylaxis
     Dosage: .5 ML
     Route: 030
     Dates: start: 20211126
  2. ROTATEQ [Concomitant]
     Active Substance: HUMAN ROTAVIRUS A TYPE G1P7(5) STRAIN WI79 LIVE ANTIGEN\HUMAN ROTAVIRUS A TYPE G2P7(5) STRAIN SC2 LI
     Indication: Prophylaxis
     Dosage: 2 ML
     Route: 048
     Dates: start: 20211126

REACTIONS (6)
  - Hyperpyrexia [Recovered/Resolved]
  - Injection site induration [Recovered/Resolved]
  - Injection site urticaria [Recovered/Resolved]
  - Malaise [Recovered/Resolved]
  - Decreased appetite [Recovered/Resolved]
  - Irritability [Recovered/Resolved]

NARRATIVE: CASE EVENT DATE: 20211126
